FAERS Safety Report 8882178 (Version 2)
Quarter: 2013Q3

REPORT INFORMATION
  Report Type: Spontaneous
  Country: US (occurrence: US)
  Receive Date: 20121102
  Receipt Date: 20130816
  Transmission Date: 20140515
  Serious: Yes (Hospitalization, Other)
  Sender: FDA-Public Use
  Company Number: US-NAPPMUNDI-USA-2012-0093959

PATIENT
  Age: 57 Year
  Sex: Male

DRUGS (1)
  1. BUTRANS [Suspect]
     Indication: PRODUCT USED FOR UNKNOWN INDICATION
     Dosage: UNK UNK, SEE TEXT
     Route: 063
     Dates: start: 201208, end: 201208

REACTIONS (5)
  - Renal failure [Unknown]
  - Hallucination [Recovered/Resolved]
  - Convulsion [Unknown]
  - Rhabdomyolysis [Recovered/Resolved]
  - Amnesia [Recovered/Resolved]
